FAERS Safety Report 17013598 (Version 1)
Quarter: 2019Q4

REPORT INFORMATION
  Report Type: Spontaneous
  Country: US (occurrence: US)
  Receive Date: 20191110
  Receipt Date: 20191110
  Transmission Date: 20200122
  Serious: No
  Sender: FDA-Public Use
  Company Number: NVSC2019US028963

PATIENT
  Sex: Female

DRUGS (1)
  1. LEUPROLIDE ACETATE. [Suspect]
     Active Substance: LEUPROLIDE ACETATE
     Indication: PRODUCT USED FOR UNKNOWN INDICATION
     Dosage: 1 DF, QD (1MG/0.2ML, DAILY) FOR 7 DAYS.
     Route: 065

REACTIONS (3)
  - Mouth ulceration [Unknown]
  - Oral mucosal eruption [Unknown]
  - Pharyngeal ulceration [Unknown]
